FAERS Safety Report 5009808-5 (Version None)
Quarter: 2006Q2

REPORT INFORMATION
  Report Type: 
  Country: None (occurrence: None)
  Receive Date: 20060522
  Receipt Date: 20060522
  Transmission Date: 20061013
  Serious: Yes (Life-Threatening)
  Sender: FDA-Public Use
  Company Number: None

PATIENT
  Sex: Male

DRUGS (1)
  1. DACARBAZINE [Suspect]
     Indication: LYMPHOMA
     Dosage: 700 MG IV
     Route: 042
     Dates: start: 20060323, end: 20060509

REACTIONS (2)
  - CHILLS [None]
  - INFUSION RELATED REACTION [None]
